FAERS Safety Report 8002708-8 (Version None)
Quarter: 2011Q4

REPORT INFORMATION
  Report Type: 
  Country: None (occurrence: None)
  Receive Date: 20111220
  Receipt Date: 20111205
  Transmission Date: 20120403
  Serious: Yes (Other)
  Sender: FDA-Public Use
  Company Number: EU-2011-10274

PATIENT
  Age: 86 Year
  Sex: Male

DRUGS (10)
  1. FOLIC ACID [Concomitant]
  2. DOXAZOSIN MESYLATE [Concomitant]
  3. ALENDRONATE SODIUM [Concomitant]
  4. LISINOPRIL [Concomitant]
  5. OMEPRAZOLE [Concomitant]
  6. GLIMEPIRIDE [Concomitant]
  7. ASPIRIN [Concomitant]
  8. CILOSTAZOL [Suspect]
     Indication: INTERMITTENT CLAUDICATION
     Dosage: 100 MG MILLIGRAM(S), ORAL
     Route: 048
     Dates: start: 20110304, end: 20110314
  9. METOTREXATE (METHOTREXATE SODIUM) [Concomitant]
  10. METHYLPREDNISOLONE [Concomitant]

REACTIONS (1)
  - SINUS TACHYCARDIA [None]
